FAERS Safety Report 13760750 (Version 1)
Quarter: 2017Q3

REPORT INFORMATION
  Report Type: Spontaneous
  Country: US (occurrence: US)
  Receive Date: 20170717
  Receipt Date: 20170717
  Transmission Date: 20171127
  Serious: No
  Sender: FDA-Public Use
  Company Number: US-MYLANLABS-2017M1030522

PATIENT
  Age: 75 Year
  Sex: Female
  Weight: 66 kg

DRUGS (2)
  1. ESTRADIOL TRANSDERMAL SYSTEM [Suspect]
     Active Substance: ESTRADIOL
     Indication: HORMONE REPLACEMENT THERAPY
     Dosage: 0.075 MG, QD (CHGANGE EVERY 2 WEEKS)
     Route: 062
     Dates: start: 201705
  2. SIMVASTATIN. [Concomitant]
     Active Substance: SIMVASTATIN
     Indication: BLOOD PRESSURE ABNORMAL
     Dosage: UNK

REACTIONS (3)
  - Product adhesion issue [Not Recovered/Not Resolved]
  - Breast oedema [Not Recovered/Not Resolved]
  - Nipple pain [Not Recovered/Not Resolved]

NARRATIVE: CASE EVENT DATE: 20170518
